FAERS Safety Report 9499436 (Version 1)
Quarter: 2013Q1

REPORT INFORMATION
  Report Type: Spontaneous
  Country: US (occurrence: None)
  Receive Date: 20130107
  Receipt Date: 20130107
  Transmission Date: 20140127
  Serious: No
  Sender: FDA-Public Use
  Company Number: PHEH2012US017669

PATIENT
  Age: 41 Year
  Sex: Male
  Weight: 104.3 kg

DRUGS (9)
  1. GILENYA (FTY) CAPSULE, 0.5MG [Suspect]
     Route: 048
  2. SINGULAIR [Concomitant]
  3. MULTIVITAMIN AND MINERAL SUPPLEMENT [Concomitant]
  4. D3-VICOTRAT (COLECALCIFEROL) CAPSULE, 10000 IU [Concomitant]
  5. COQ10 (UBIDECARENONE) CAPSULE, 100MG [Concomitant]
  6. FISH OIL (FISH OIL) CAPSULE [Concomitant]
  7. VITAMIN B12 (CYANOCOBALAMIN), 1MG [Concomitant]
  8. GINKGO BILOBA (GINKGO BILOBA) TABLET, 40MG [Concomitant]
  9. SAW PALMETTO (SERENOA REPENS) CAPSULE [Concomitant]

REACTIONS (2)
  - Constipation [None]
  - Headache [None]
